FAERS Safety Report 8019807-7 (Version None)
Quarter: 2012Q1

REPORT INFORMATION
  Report Type: 
  Country: None (occurrence: None)
  Receive Date: 20120103
  Receipt Date: 20111228
  Transmission Date: 20120608
  Serious: Yes (Hospitalization)
  Sender: FDA-Public Use
  Company Number: FR-PFIZER INC-2011164206

PATIENT
  Age: 53 Year
  Sex: Male

DRUGS (10)
  1. KAYEXALATE [Suspect]
     Dosage: UNK
     Route: 048
     Dates: start: 20110603, end: 20110626
  2. EUPRESSYL [Suspect]
     Dosage: UNK
     Route: 048
     Dates: start: 20110529
  3. METHYLPREDNISOLONE [Concomitant]
     Dosage: UNK
     Dates: start: 20110626, end: 20110629
  4. AMLODIPINE BESYLATE [Suspect]
     Dosage: UNK
     Route: 048
  5. RAMIPRIL [Suspect]
     Dosage: UNK
     Route: 048
     Dates: start: 20110604, end: 20110614
  6. KEPPRA [Suspect]
     Dosage: UNK
     Route: 048
  7. ATORVASTATIN CALCIUM [Suspect]
     Dosage: 10 MG, 1X/DAY
     Route: 048
     Dates: start: 20110530, end: 20110624
  8. REPAGLINIDE [Suspect]
     Indication: DIABETES MELLITUS
     Dosage: UNK
     Route: 048
     Dates: start: 20110603, end: 20110626
  9. CITALOPRAM HYDROBROMIDE [Suspect]
     Route: 048
  10. PREDNISOLONE [Suspect]
     Dosage: UNK
     Route: 048
     Dates: start: 20110604, end: 20110627

REACTIONS (2)
  - NEPHROPATHY [None]
  - RENAL IMPAIRMENT [None]
